FAERS Safety Report 17505344 (Version 1)
Quarter: 2020Q1

REPORT INFORMATION
  Report Type: Spontaneous
  Country: SE (occurrence: SE)
  Receive Date: 20200305
  Receipt Date: 20200305
  Transmission Date: 20200409
  Serious: Yes (Other)
  Sender: FDA-Public Use
  Company Number: SE-BAYER-2020-037665

PATIENT
  Age: 24 Year
  Sex: Female
  Weight: 72 kg

DRUGS (1)
  1. JAYDESS [Suspect]
     Active Substance: LEVONORGESTREL
     Dosage: 14 ?G PER DAY CONTINUOUSY
     Route: 015
     Dates: start: 201804, end: 20200212

REACTIONS (3)
  - Acne [Recovering/Resolving]
  - Mood swings [Recovering/Resolving]
  - Depressed mood [Recovering/Resolving]

NARRATIVE: CASE EVENT DATE: 201808
